FAERS Safety Report 4974284-5 (Version None)
Quarter: 2006Q2

REPORT INFORMATION
  Report Type: 
  Country: None (occurrence: None)
  Receive Date: 20060417
  Receipt Date: 20060412
  Transmission Date: 20061013
  Serious: Yes (Other)
  Sender: FDA-Public Use
  Company Number: DE-AVENTIS-200611077DE

PATIENT
  Age: 36 Year
  Sex: Male

DRUGS (1)
  1. KETEK [Suspect]
     Route: 048

REACTIONS (2)
  - PSYCHOTIC DISORDER [None]
  - SELF INJURIOUS BEHAVIOUR [None]
